FAERS Safety Report 7362039-6 (Version None)
Quarter: 2011Q1

REPORT INFORMATION
  Report Type: 
  Country: None (occurrence: None)
  Receive Date: 20110318
  Receipt Date: 20110308
  Transmission Date: 20110831
  Serious: Yes (Life-Threatening, Hospitalization)
  Sender: FDA-Public Use
  Company Number: CA-JNJFOC-20110303809

PATIENT
  Sex: Male

DRUGS (3)
  1. EXTRA STRENGTH TYLENOL SINUS DAYTIME [Suspect]
     Indication: LOWER RESPIRATORY TRACT INFECTION
  2. EXTRA STRENGTH TYLENOL SINUS DAYTIME [Suspect]
     Indication: DYSPNOEA
  3. EXTRA STRENGTH TYLENOL SINUS DAYTIME [Suspect]
     Indication: NASOPHARYNGITIS

REACTIONS (2)
  - ANAPHYLACTIC SHOCK [None]
  - ANGIOEDEMA [None]
